FAERS Safety Report 17223878 (Version 1)
Quarter: 2020Q1

REPORT INFORMATION
  Report Type: Spontaneous
  Country: FR (occurrence: FR)
  Receive Date: 20200102
  Receipt Date: 20200102
  Transmission Date: 20200409
  Serious: Yes (Life-Threatening)
  Sender: FDA-Public Use
  Company Number: FR-TEVA-2019-FR-1159989

PATIENT
  Age: 71 Year
  Sex: Female
  Weight: 82 kg

DRUGS (17)
  1. PERINDOPRIL [Suspect]
     Active Substance: PERINDOPRIL
     Indication: HYPERTENSION
     Dosage: 1 DOSAGE FORMS
     Dates: end: 20191107
  2. PARACETAMOL B BRAUN 10 MG/ML, SOLUTION POUR PERFUSION [Suspect]
     Active Substance: ACETAMINOPHEN
     Indication: PYREXIA
     Dosage: 4 DOSAGE FORMS
     Route: 041
     Dates: start: 20191104, end: 20191107
  3. METFORMINE [Concomitant]
     Active Substance: METFORMIN HYDROCHLORIDE
  4. REPAGLINIDE. [Concomitant]
     Active Substance: REPAGLINIDE
  5. POTASSIUM CHLORURE B BRAUN [Concomitant]
  6. POLARAMINE [Concomitant]
     Active Substance: DEXCHLORPHENIRAMINE MALEATE
  7. FUROSEMIDE. [Concomitant]
     Active Substance: FUROSEMIDE
  8. DIFFU K [Suspect]
     Active Substance: POTASSIUM CHLORIDE
     Indication: PROPHYLAXIS
     Dosage: 2 DOSAGE FORMS
     Dates: end: 20191107
  9. IPRATROPIUM ARROW [Concomitant]
     Active Substance: IPRATROPIUM
  10. PRIMPERAN [Concomitant]
     Active Substance: METOCLOPRAMIDE HYDROCHLORIDE
  11. HUMALOG [Concomitant]
     Active Substance: INSULIN LISPRO
  12. AMOXICILLINE ACIDE CLAVULANIQUE SANDOZ [Suspect]
     Active Substance: AMOXICILLIN\CLAVULANATE POTASSIUM
     Indication: LUNG DISORDER
     Dosage: DOSAGE FORMS
     Route: 042
     Dates: start: 20191104, end: 20191107
  13. LOVENOX [Concomitant]
     Active Substance: ENOXAPARIN SODIUM
  14. TRAVATAN [Concomitant]
     Active Substance: TRAVOPROST
  15. SALBUTAMOL MYLAN [Concomitant]
     Active Substance: ALBUTEROL
  16. PREGABALINE [Suspect]
     Active Substance: PREGABALIN
     Indication: PAIN
     Dosage: 2 DOSAGE FORMS
     Dates: end: 20191107
  17. HYDROCORTISONE UPJOHN 100 MG, PREPARATION INJECTABLE [Concomitant]
     Active Substance: HYDROCORTISONE SODIUM SUCCINATE

REACTIONS (1)
  - Hepatitis fulminant [Recovering/Resolving]

NARRATIVE: CASE EVENT DATE: 20191107
